FAERS Safety Report 8788911 (Version 5)
Quarter: 2013Q2

REPORT INFORMATION
  Report Type: Report from Study
  Country: JP (occurrence: JP)
  Receive Date: 20120915
  Receipt Date: 20130405
  Transmission Date: 20140414
  Serious: Yes (Death, Hospitalization)
  Sender: FDA-Public Use
  Company Number: JP-ABBOTT-12P-087-0978656-00

PATIENT
  Age: 75 Year
  Sex: Male

DRUGS (18)
  1. LIPACREON [Suspect]
     Indication: EXOCRINE PANCREATIC FUNCTION TEST ABNORMAL
     Route: 048
     Dates: start: 20120327, end: 20120718
  2. LANSOPRAZOLE [Concomitant]
     Indication: PRODUCT USED FOR UNKNOWN INDICATION
     Route: 048
     Dates: start: 20110805, end: 20120719
  3. DIAZEPAM [Concomitant]
     Indication: INSOMNIA
     Dosage: 1DF DAILY
     Route: 048
     Dates: end: 20120718
  4. ZOLPIDEM TARTRATE [Concomitant]
     Indication: INSOMNIA
     Dosage: 5MG DAILY
     Route: 048
     Dates: end: 20120718
  5. ESTAZOLAM [Concomitant]
     Indication: INSOMNIA
     Dosage: 2MG DAILY
     Route: 048
     Dates: end: 20120718
  6. TIOTROPIUM BROMIDE HYDRATE [Concomitant]
     Indication: CHRONIC RESPIRATORY FAILURE
     Dosage: 1DF DAILY
     Route: 055
     Dates: end: 20120718
  7. PARENTERAL NUTRITION [Concomitant]
     Indication: PRODUCT USED FOR UNKNOWN INDICATION
     Dosage: 3DF DAILY
     Route: 048
     Dates: end: 20120718
  8. ISONIAZID [Concomitant]
     Indication: TUBERCULOSIS
     Route: 048
     Dates: start: 20120426, end: 20120718
  9. LORATADINE [Concomitant]
     Indication: DERMATITIS ALLERGIC
     Dosage: 1MG DAILY
     Route: 048
     Dates: end: 20120718
  10. ASPIRIN [Concomitant]
     Indication: CEREBRAL INFARCTION
     Dosage: 100MG DAILY
     Route: 048
     Dates: end: 20120718
  11. THEOPHYLLINE [Concomitant]
     Indication: CHRONIC RESPIRATORY FAILURE
     Dosage: 200MG DAILY
     Route: 048
     Dates: end: 20120718
  12. MOSAPRIDE CITRATE HYDRATE [Concomitant]
     Indication: PRODUCT USED FOR UNKNOWN INDICATION
     Dosage: 150MG DAILY
     Route: 048
     Dates: end: 20120718
  13. CLOSTRIDIUM BUTYRICUM COMBINED DRUG [Concomitant]
     Indication: PRODUCT USED FOR UNKNOWN INDICATION
     Dosage: 3DF DAILY
     Route: 048
     Dates: end: 20120718
  14. NICORANDIL [Concomitant]
     Indication: CARDIAC FAILURE
     Dosage: 15MG DAILY
     Route: 048
     Dates: end: 20120718
  15. D-SORBITOL [Concomitant]
     Indication: CONSTIPATION
     Dosage: 3DF DAILY
     Route: 048
     Dates: end: 20120718
  16. PANTETHINE [Concomitant]
     Indication: PRODUCT USED FOR UNKNOWN INDICATION
     Dosage: 3G DAILY
     Route: 048
     Dates: end: 20120718
  17. DAIKENCHUTO [Concomitant]
     Indication: PRODUCT USED FOR UNKNOWN INDICATION
     Dosage: 6DF DAILY
     Route: 048
     Dates: end: 20120718
  18. SENNOSIDE [Concomitant]
     Indication: PRODUCT USED FOR UNKNOWN INDICATION
     Dosage: 48MG DAILY
     Route: 048
     Dates: end: 20120718

REACTIONS (2)
  - Subdural haematoma [Fatal]
  - Altered state of consciousness [Fatal]
